FAERS Safety Report 21542121 (Version 1)
Quarter: 2022Q4

REPORT INFORMATION
  Report Type: Spontaneous
  Country: US (occurrence: US)
  Receive Date: 20221102
  Receipt Date: 20221102
  Transmission Date: 20230112
  Serious: Yes (Life-Threatening, Hospitalization)
  Sender: FDA-Public Use
  Company Number: US-MYLANLABS-2022M1118745

PATIENT
  Age: 53 Year
  Sex: Female

DRUGS (6)
  1. SOTALOL [Suspect]
     Active Substance: SOTALOL
     Indication: Drug therapy
     Dosage: 15 DOSAGE FORM
     Route: 065
  2. NOREPINEPHRINE [Suspect]
     Active Substance: NOREPINEPHRINE
     Indication: Toxicity to various agents
     Dosage: UNK
     Route: 065
  3. MAGNESIUM SULFATE [Suspect]
     Active Substance: MAGNESIUM SULFATE
     Indication: Toxicity to various agents
     Dosage: 2 GRAM
     Route: 065
  4. ISOPROTERENOL [Suspect]
     Active Substance: ISOPROTERENOL
     Indication: Toxicity to various agents
     Dosage: 20 MICROGRAM, QMINUTE, UPTITRATION TO 20MICROG/MIN
     Route: 065
  5. INSULIN GLARGINE [Suspect]
     Active Substance: INSULIN GLARGINE
     Indication: Toxicity to various agents
     Dosage: UNK, BOLUS 60 UNITS
     Route: 065
  6. INSULIN GLARGINE [Suspect]
     Active Substance: INSULIN GLARGINE
     Dosage: 0.5 MILLIGRAM/KILOGRAM, QH, CONTINUOUS INFUSION
     Route: 065

REACTIONS (8)
  - Drug ineffective [Unknown]
  - Intentional product misuse [Unknown]
  - Intentional overdose [Recovering/Resolving]
  - Toxicity to various agents [Recovering/Resolving]
  - Hypotension [Recovering/Resolving]
  - Sinus bradycardia [Recovering/Resolving]
  - Ventricular tachycardia [Recovering/Resolving]
  - Electrocardiogram QT prolonged [Recovered/Resolved]
